FAERS Safety Report 9690938 (Version 1)
Quarter: 2013Q4

REPORT INFORMATION
  Report Type: Spontaneous
  Country: EC (occurrence: EC)
  Receive Date: 20131115
  Receipt Date: 20131115
  Transmission Date: 20140711
  Serious: Yes (Death)
  Sender: FDA-Public Use
  Company Number: EC-PFIZER INC-2013326645

PATIENT
  Age: 74 Year
  Sex: Male

DRUGS (1)
  1. NORVASC [Suspect]
     Indication: HYPERTENSION
     Dosage: 10 MG, 1X/DAY
     Route: 048
     Dates: end: 20130803

REACTIONS (1)
  - Cardio-respiratory arrest [Fatal]
